FAERS Safety Report 6138495-8 (Version None)
Quarter: 2009Q1

REPORT INFORMATION
  Report Type: 
  Country: None (occurrence: None)
  Receive Date: 20090331
  Receipt Date: 20090129
  Transmission Date: 20090719
  Serious: Yes (Hospitalization)
  Sender: FDA-Public Use
  Company Number: FR-MERCK-0903ZAF00013

PATIENT
  Age: 36 Year
  Sex: Male

DRUGS (4)
  1. STROMECTOL [Suspect]
     Indication: FILARIASIS
     Route: 065
  2. DIETHYLCARBAMAZINE CITRATE [Concomitant]
     Indication: FILARIASIS
     Route: 065
  3. DIETHYLCARBAMAZINE CITRATE [Concomitant]
     Route: 065
  4. PREDNISONE [Concomitant]
     Route: 065

REACTIONS (3)
  - ENCEPHALOPATHY [None]
  - PROTEINURIA [None]
  - PYREXIA [None]
